FAERS Safety Report 6831683-4 (Version None)
Quarter: 2010Q3

REPORT INFORMATION
  Report Type: 
  Country: None (occurrence: None)
  Receive Date: 20100712
  Receipt Date: 20100421
  Transmission Date: 20110219
  Serious: Yes (Life-Threatening, Hospitalization)
  Sender: FDA-Public Use
  Company Number: JP-SANOFI-AVENTIS-2010SA023187

PATIENT
  Age: 62 Year
  Sex: Male

DRUGS (9)
  1. LASIX [Suspect]
     Route: 048
     Dates: start: 20100407
  2. TAXOTERE [Suspect]
     Route: 041
     Dates: start: 20090929, end: 20090929
  3. TAXOTERE [Suspect]
     Route: 041
     Dates: start: 20091020, end: 20091020
  4. TAXOTERE [Suspect]
     Route: 041
     Dates: start: 20091111, end: 20091111
  5. TAXOTERE [Suspect]
     Route: 041
     Dates: start: 20100127, end: 20100127
  6. TAXOTERE [Suspect]
     Route: 041
     Dates: start: 20100216, end: 20100216
  7. TAXOTERE [Suspect]
     Route: 041
     Dates: start: 20100309, end: 20100309
  8. NORVASC [Suspect]
     Route: 048
  9. CRESTOR [Suspect]
     Route: 048

REACTIONS (1)
  - INTERSTITIAL LUNG DISEASE [None]
